FAERS Safety Report 7402632-5 (Version None)
Quarter: 2011Q1

REPORT INFORMATION
  Report Type: 
  Country: None (occurrence: None)
  Receive Date: 20110331
  Receipt Date: 20110321
  Transmission Date: 20110831
  Serious: Yes (Hospitalization)
  Sender: FDA-Public Use
  Company Number: 2011-0425

PATIENT
  Age: 83 Year
  Sex: Male
  Weight: 54 kg

DRUGS (6)
  1. LEVOTHYROX (LEVOTHYROXINE SODIUM) [Concomitant]
  2. SULFARLEM (ANETHOLE TRITHIONE) [Concomitant]
  3. SOMATULINE DEPOT [Suspect]
     Indication: NEUROENDOCRINE CARCINOMA OF THE SKIN
     Dosage: 20 MG (20 MG, 1 IN 15 D), SUBCUTANEOUS
     Route: 058
     Dates: start: 20110117, end: 20110202
  4. ASPEGIC 1000 [Concomitant]
  5. FLUIDABAK (POLYVIDONE) [Concomitant]
  6. VITAMINE A (RETINOL) [Concomitant]

REACTIONS (8)
  - PULMONARY CONGESTION [None]
  - MALAISE [None]
  - LOSS OF CONSCIOUSNESS [None]
  - INCORRECT DOSE ADMINISTERED [None]
  - SYNCOPE [None]
  - DYSKINESIA [None]
  - SENSE OF OPPRESSION [None]
  - INCORRECT ROUTE OF DRUG ADMINISTRATION [None]
